FAERS Safety Report 17596075 (Version 1)
Quarter: 2020Q1

REPORT INFORMATION
  Report Type: Spontaneous
  Country: US (occurrence: US)
  Receive Date: 20200330
  Receipt Date: 20200330
  Transmission Date: 20200409
  Serious: No
  Sender: FDA-Public Use
  Company Number: US-JNJFOC-20200238505

PATIENT
  Sex: Female

DRUGS (2)
  1. VISINE A MULTI-ACTION EYE ALLERGY RELIEF [Suspect]
     Active Substance: NAPHAZOLINE HYDROCHLORIDE\PHENIRAMINE MALEATE
     Indication: EYE ALLERGY
     Dosage: 1 DROPS IF IT IS NOT THAT BAD.?DATE OF LAST ADMIN: 23-FEB-2020
     Route: 047
     Dates: start: 201908
  2. VISINE A [Concomitant]
     Active Substance: NAPHAZOLINE HYDROCHLORIDE\PHENIRAMINE MALEATE
     Indication: EYE ALLERGY
     Dosage: 2 DROPS, 8 HOURS AFTER USING THE VISINE ALLERGY RELIEF MULTI ACTION
     Route: 047

REACTIONS (2)
  - Drug ineffective [Unknown]
  - Eye irritation [Recovered/Resolved]

NARRATIVE: CASE EVENT DATE: 201908
